FAERS Safety Report 9016097 (Version 2)
Quarter: 2013Q3

REPORT INFORMATION
  Report Type: Spontaneous
  Country: GB (occurrence: GB)
  Receive Date: 20130116
  Receipt Date: 20130927
  Transmission Date: 20140515
  Serious: Yes (Other)
  Sender: FDA-Public Use
  Company Number: PHHY2013GB003039

PATIENT
  Age: 67 Year
  Sex: Female

DRUGS (2)
  1. LEVOFLOXACIN [Suspect]
     Indication: INFECTION
     Dosage: 500 MG, QD
     Route: 048
     Dates: start: 20130101, end: 20130102
  2. LEVOTHYROXINE [Concomitant]

REACTIONS (5)
  - Loss of consciousness [Recovering/Resolving]
  - Diplegia [Unknown]
  - Syncope [Unknown]
  - Asthenia [Unknown]
  - Vomiting [Recovered/Resolved]
